FAERS Safety Report 18293776 (Version 5)
Quarter: 2021Q4

REPORT INFORMATION
  Report Type: Other
  Country: US (occurrence: US)
  Receive Date: 20200921
  Receipt Date: 20211221
  Transmission Date: 20220303
  Serious: No
  Sender: FDA-Public Use
  Company Number: US-ACORDA-ACO_165816_2020

PATIENT
  Sex: Female
  Weight: 79.365 kg

DRUGS (10)
  1. INBRIJA [Suspect]
     Active Substance: LEVODOPA
     Indication: Parkinson^s disease
     Dosage: 84 MILLIGRAM, PRN, NOT TO EXCEED 5 DOSES A DAY
     Dates: start: 202007
  2. INBRIJA [Suspect]
     Active Substance: LEVODOPA
     Indication: On and off phenomenon
  3. RYTARY [Concomitant]
     Active Substance: CARBIDOPA\LEVODOPA
     Indication: Product used for unknown indication
     Dosage: 48.75MG \195MG, UNK, 4 CAPSULES 4 TIMES A DAY
     Route: 065
  4. RYTARY [Concomitant]
     Active Substance: CARBIDOPA\LEVODOPA
     Dosage: 48.75MG \195MG, UNK, 3 CAPSULES 3 TIMES A DAY
     Route: 065
  5. PRAMIPEXOLE [Concomitant]
     Active Substance: PRAMIPEXOLE
     Indication: Product used for unknown indication
     Dosage: UNK
     Route: 065
  6. PREMARIN [Concomitant]
     Active Substance: ESTROGENS, CONJUGATED
     Indication: Product used for unknown indication
     Dosage: UNK
     Route: 065
  7. AMANTADINE [Concomitant]
     Active Substance: AMANTADINE
     Indication: Product used for unknown indication
     Dosage: 100 MILLIGRAM
     Route: 065
  8. AMLODIPINE [Concomitant]
     Active Substance: AMLODIPINE BESYLATE
     Indication: Product used for unknown indication
     Dosage: 5 MILLIGRAM
     Route: 065
  9. LORAZEPAM [Concomitant]
     Active Substance: LORAZEPAM
     Indication: Product used for unknown indication
     Dosage: 0.5 MILLIGRAM
     Route: 065
  10. ONGENTYS [Concomitant]
     Active Substance: OPICAPONE
     Indication: Product used for unknown indication
     Dosage: 25 MILLIGRAM
     Route: 065

REACTIONS (20)
  - Throat irritation [Not Recovered/Not Resolved]
  - Device difficult to use [Unknown]
  - Memory impairment [Unknown]
  - Anxiety [Unknown]
  - Pain [Unknown]
  - Movement disorder [Unknown]
  - Device issue [Unknown]
  - Incorrect route of product administration [Unknown]
  - Anosmia [Unknown]
  - Ageusia [Unknown]
  - On and off phenomenon [Unknown]
  - Device difficult to use [Unknown]
  - Condition aggravated [Unknown]
  - Parkinson^s disease [Not Recovered/Not Resolved]
  - Adverse event [Unknown]
  - Oropharyngeal discomfort [Not Recovered/Not Resolved]
  - Cough [Not Recovered/Not Resolved]
  - Hallucination [Recovered/Resolved]
  - Drug ineffective [Unknown]
  - Adverse event [Not Recovered/Not Resolved]
